FAERS Safety Report 16390187 (Version 1)
Quarter: 2019Q2

REPORT INFORMATION
  Report Type: Spontaneous
  Country: US (occurrence: US)
  Receive Date: 20190604
  Receipt Date: 20190604
  Transmission Date: 20190711
  Serious: No
  Sender: FDA-Public Use
  Company Number: US-ASTRAZENECA-2019SE81602

PATIENT
  Age: 49 Year
  Sex: Female

DRUGS (5)
  1. SAPHRIS [Suspect]
     Active Substance: ASENAPINE MALEATE
     Indication: PARANOIA
     Route: 048
     Dates: start: 201904, end: 20190523
  2. ZOLOFT [Concomitant]
     Active Substance: SERTRALINE HYDROCHLORIDE
  3. SEROQUEL [Suspect]
     Active Substance: QUETIAPINE FUMARATE
     Route: 048
  4. MELATONIN [Concomitant]
     Active Substance: MELATONIN
  5. SAPHRIS [Suspect]
     Active Substance: ASENAPINE MALEATE
     Indication: PARANOIA
     Route: 048

REACTIONS (6)
  - Thinking abnormal [Not Recovered/Not Resolved]
  - Weight increased [Unknown]
  - Product lot number issue [Unknown]
  - Gastrointestinal inflammation [Unknown]
  - Liver disorder [Not Recovered/Not Resolved]
  - Product quality issue [Unknown]

NARRATIVE: CASE EVENT DATE: 201904
